FAERS Safety Report 6373596-0 (Version None)
Quarter: 2009Q3

REPORT INFORMATION
  Report Type: 
  Country: None (occurrence: None)
  Receive Date: 20090924
  Receipt Date: 20090921
  Transmission Date: 20100115
  Serious: Yes (Death)
  Sender: FDA-Public Use
  Company Number: ES-JNJFOC-20090707658

PATIENT
  Age: 76 Year
  Sex: Male

DRUGS (1)
  1. PANFUNGOL [Suspect]
     Indication: NEOPLASM PROSTATE
     Route: 048

REACTIONS (3)
  - ADRENAL INSUFFICIENCY [None]
  - OFF LABEL USE [None]
  - OVERDOSE [None]
